FAERS Safety Report 17499956 (Version 1)
Quarter: 2020Q1

REPORT INFORMATION
  Report Type: Spontaneous
  Country: GB (occurrence: GB)
  Receive Date: 20200305
  Receipt Date: 20200305
  Transmission Date: 20200409
  Serious: Yes (Death, Other)
  Sender: FDA-Public Use
  Company Number: GB-AMGEN-GBRSP2020036705

PATIENT
  Age: 64 Year
  Sex: Male

DRUGS (5)
  1. PYRAZINAMIDE. [Concomitant]
     Active Substance: PYRAZINAMIDE
     Indication: TUBERCULOSIS
     Dosage: UNK, DAILY
  2. RIFAMPICIN [Concomitant]
     Active Substance: RIFAMPIN
     Indication: TUBERCULOSIS
     Dosage: UNK UNK, QD
  3. ENBREL [Suspect]
     Active Substance: ETANERCEPT
     Indication: LICHEN PLANUS
     Dosage: UNK
     Route: 065
  4. ETHAMBUTOL [Concomitant]
     Active Substance: ETHAMBUTOL HYDROCHLORIDE
     Indication: TUBERCULOSIS
     Dosage: UNK, DAILY
  5. ISONIAZID. [Concomitant]
     Active Substance: ISONIAZID
     Indication: TUBERCULOSIS
     Dosage: UNK, DAILY

REACTIONS (4)
  - Sepsis [Fatal]
  - Off label use [Unknown]
  - Product use in unapproved indication [Unknown]
  - Pneumonia [Fatal]
